FAERS Safety Report 7298687-1 (Version None)
Quarter: 2011Q1

REPORT INFORMATION
  Report Type: 
  Country: None (occurrence: None)
  Receive Date: 20110217
  Receipt Date: 20110210
  Transmission Date: 20110831
  Serious: Yes (Other)
  Sender: FDA-Public Use
  Company Number: US-ENDO PHARMACEUTICALS INC.-OPER20110012

PATIENT
  Age: 34 Year
  Sex: Male

DRUGS (3)
  1. OPANA ER [Suspect]
     Route: 048
     Dates: start: 20070101
  2. OPANA ER [Suspect]
     Indication: PAIN
     Dosage: 30 MG
     Route: 048
  3. OXYMORPHONE HYDROCHLORIDE [Suspect]
     Indication: BREAKTHROUGH PAIN
     Dosage: 10 MG
     Route: 048

REACTIONS (2)
  - OVERDOSE [None]
  - DRUG INEFFECTIVE [None]
